FAERS Safety Report 13285869 (Version 1)
Quarter: 2017Q1

REPORT INFORMATION
  Report Type: Spontaneous
  Country: US (occurrence: US)
  Receive Date: 20170302
  Receipt Date: 20170302
  Transmission Date: 20170428
  Serious: No
  Sender: FDA-Public Use
  Company Number: US-ALLERGAN-1000086343

PATIENT
  Sex: Male

DRUGS (1)
  1. VIIBRYD [Suspect]
     Active Substance: VILAZODONE HYDROCHLORIDE
     Indication: ANXIETY
     Dosage: UNK

REACTIONS (6)
  - Anxiety [Unknown]
  - Mood swings [Unknown]
  - Depressed mood [Unknown]
  - Hypoacusis [Unknown]
  - Euphoric mood [Unknown]
  - Off label use [Unknown]
